FAERS Safety Report 19839648 (Version 1)
Quarter: 2021Q3

REPORT INFORMATION
  Report Type: Spontaneous
  Country: US (occurrence: US)
  Receive Date: 20210916
  Receipt Date: 20210916
  Transmission Date: 20211014
  Serious: No
  Sender: FDA-Public Use
  Company Number: US-BSC-2021000008

PATIENT
  Age: 62 Year
  Sex: Female

DRUGS (5)
  1. VARITHENA [Suspect]
     Active Substance: POLIDOCANOL
     Dosage: POL CAN: 202?00212433; O2 CAN:?BN7003317; UC NO: 102?00206914; ADMN PACK NO: 1661204; EXP DT: 02/21
     Dates: start: 20210106, end: 20210106
  2. VARITHENA [Suspect]
     Active Substance: POLIDOCANOL
     Dosage: POL CAN: 202?00212433; O2 CAN:?BN7003317; UC NO: 102?00206914; ADMN PACK NO: 1661204; EXP DT: 02/21
     Dates: start: 20210111, end: 20210111
  3. VARITHENA [Suspect]
     Active Substance: POLIDOCANOL
     Dosage: POL CAN: 202?00212433; O2 CAN:?BN7003317; UC NO: 102?00206914; ADMN PACK NO: 1661204; EXP DT: 02/21
     Dates: start: 20210113, end: 20210113
  4. VARITHENA [Suspect]
     Active Substance: POLIDOCANOL
     Dosage: POL CAN: 202?00212433; O2 CAN:?BN7003317; UC NO: 102?00206914; ADMN PACK NO: 1661204; EXP DT: 02/21
     Dates: start: 20210113, end: 20210113
  5. VARITHENA [Suspect]
     Active Substance: POLIDOCANOL
     Dosage: POL CAN: 202?00212433; O2 CAN:?BN7003317; UC NO: 102?00206914; ADMN PACK NO: 1661204; EXP DT: 02/21
     Dates: start: 20210106, end: 20210106

REACTIONS (7)
  - Wrong technique in product usage process [Unknown]
  - Wrong technique in product usage process [Unknown]
  - Product quality issue [Unknown]
  - Wrong technique in product usage process [Unknown]
  - Inappropriate schedule of product administration [Unknown]
  - Prescribed overdose [Unknown]
  - No adverse event [Unknown]

NARRATIVE: CASE EVENT DATE: 20210106
